FAERS Safety Report 4582566-4 (Version None)
Quarter: 2005Q1

REPORT INFORMATION
  Report Type: 
  Country: None (occurrence: None)
  Receive Date: 20050215
  Receipt Date: 20050202
  Transmission Date: 20050727
  Serious: Yes (Hospitalization)
  Sender: FDA-Public Use
  Company Number: 200510413FR

PATIENT
  Age: 74 Year
  Sex: Male

DRUGS (6)
  1. TRIATEC [Suspect]
     Route: 048
  2. LASILIX [Suspect]
  3. ISOPTIN [Concomitant]
     Route: 048
  4. PRAZOSIN HCL [Concomitant]
     Route: 048
  5. TAHOR [Concomitant]
     Route: 048
  6. PLAVIX [Concomitant]
     Route: 048

REACTIONS (2)
  - HYPERKALAEMIA [None]
  - RENAL FAILURE [None]
